FAERS Safety Report 4722543-3 (Version None)
Quarter: 2005Q3

REPORT INFORMATION
  Report Type: 
  Country: None (occurrence: None)
  Receive Date: 20050722
  Receipt Date: 20050509
  Transmission Date: 20060218
  Serious: No
  Sender: FDA-Public Use
  Company Number: 2005AP02746

PATIENT
  Age: 702 Month
  Sex: Female

DRUGS (1)
  1. OMEPRAZOLE [Suspect]
     Indication: REFLUX OESOPHAGITIS
     Route: 048
     Dates: start: 20040922, end: 20050508

REACTIONS (5)
  - BRONCHIECTASIS [None]
  - HEADACHE [None]
  - PHARYNGOLARYNGEAL PAIN [None]
  - PRODUCTIVE COUGH [None]
  - RALES [None]
